FAERS Safety Report 8591139-8 (Version None)
Quarter: 2012Q3

REPORT INFORMATION
  Report Type: 
  Country: None (occurrence: None)
  Receive Date: 20120813
  Receipt Date: 20120806
  Transmission Date: 20120928
  Serious: Yes (Other)
  Sender: FDA-Public Use
  Company Number: FR-ROCHE-1100449

PATIENT
  Sex: Male

DRUGS (5)
  1. XOLAIR [Suspect]
     Indication: HYPERSENSITIVITY
     Dates: start: 20120101
  2. EBASTINE [Concomitant]
  3. FLUTICASONE PROPIONATE/SALMETEROL [Concomitant]
  4. RHINOCORT [Concomitant]
  5. SINGULAIR [Concomitant]

REACTIONS (4)
  - PYREXIA [None]
  - COUGH [None]
  - BRONCHITIS [None]
  - ANGIOEDEMA [None]
